FAERS Safety Report 6371219-8 (Version None)
Quarter: 2009Q3

REPORT INFORMATION
  Report Type: 
  Country: None (occurrence: None)
  Receive Date: 20090923
  Receipt Date: 20070406
  Transmission Date: 20100115
  Serious: No
  Sender: FDA-Public Use
  Company Number: US-ASTRAZENECA-2007UW04068

PATIENT
  Age: 51 Year
  Sex: Female
  Weight: 113.4 kg

DRUGS (36)
  1. SEROQUEL [Suspect]
     Indication: SCHIZOPHRENIA
     Route: 048
     Dates: start: 20020401
  2. SEROQUEL [Suspect]
     Indication: DEPRESSION
     Route: 048
     Dates: start: 20020401
  3. SEROQUEL [Suspect]
     Route: 048
     Dates: start: 20020401
  4. SEROQUEL [Suspect]
     Route: 048
     Dates: start: 20020401
  5. SEROQUEL [Suspect]
     Dosage: 25-125 MG
     Route: 048
     Dates: start: 20020401
  6. SEROQUEL [Suspect]
     Dosage: 25-125 MG
     Route: 048
     Dates: start: 20020401
  7. TRAZODONE [Concomitant]
     Dates: start: 20050120, end: 20060403
  8. TRAZODONE [Concomitant]
     Dosage: 50-100 MG
     Route: 048
  9. MIRTAZAPINE [Concomitant]
     Dates: start: 20040831
  10. MIRTAZAPINE [Concomitant]
  11. BUPROPION HCL [Concomitant]
     Dates: start: 20060221, end: 20060403
  12. NAPROXEN [Concomitant]
     Route: 048
  13. XOPENEX [Concomitant]
  14. ZELNORM [Concomitant]
  15. SYNTHROID [Concomitant]
  16. ZETIA [Concomitant]
  17. REQUIP [Concomitant]
     Route: 048
  18. CRESTOR [Concomitant]
  19. COREG [Concomitant]
     Dosage: 4.25-6.25 MG
     Route: 048
  20. ADVAIR HFA [Concomitant]
  21. SINGULAIR [Concomitant]
     Route: 048
  22. ALBUTEROL [Concomitant]
  23. PREDNISONE [Concomitant]
  24. ATROVENT [Concomitant]
  25. SPIRIVA [Concomitant]
  26. ARTHROTEC [Concomitant]
  27. PRILOSEC [Concomitant]
  28. CLONIDINE [Concomitant]
  29. HYDROCODONE BITARTRATE AND ACETAMINOPHEN [Concomitant]
     Dosage: 5/500 MG
  30. PREVACID [Concomitant]
  31. PENICILLIN VK [Concomitant]
  32. DOXYCYCLINE [Concomitant]
  33. LEVAQUIN [Concomitant]
  34. LORATADINE [Concomitant]
  35. GUAIFENESIN [Concomitant]
  36. PIROXICAM [Concomitant]

REACTIONS (27)
  - ACROMEGALY [None]
  - ARTHRITIS [None]
  - ASTHMA PROPHYLAXIS [None]
  - ATROPHIC VULVOVAGINITIS [None]
  - BRONCHITIS [None]
  - CARDIOMEGALY [None]
  - CERVICAL DYSPLASIA [None]
  - CERVICOBRACHIAL SYNDROME [None]
  - CONSTIPATION [None]
  - CYSTITIS [None]
  - DIABETES MELLITUS [None]
  - DYSLIPIDAEMIA [None]
  - EMPTY SELLA SYNDROME [None]
  - FIBROCYSTIC BREAST DISEASE [None]
  - HEADACHE [None]
  - HOT FLUSH [None]
  - HYPERTENSION [None]
  - INTERTRIGO [None]
  - JOINT DISLOCATION [None]
  - LIGAMENT RUPTURE [None]
  - MUSCULOSKELETAL PAIN [None]
  - PREMATURE MENOPAUSE [None]
  - THYROID NEOPLASM [None]
  - URINARY INCONTINENCE [None]
  - VAGINAL HAEMORRHAGE [None]
  - VAGINAL INFECTION [None]
  - VAGINITIS BACTERIAL [None]
